FAERS Safety Report 8880397 (Version 1)
Quarter: 2012Q4

REPORT INFORMATION
  Report Type: 
  Country: US (occurrence: US)
  Receive Date: 20121101
  Receipt Date: 20121101
  Transmission Date: 20130627
  Serious: Yes (Other)
  Sender: FDA-Public Use
  Company Number: PHEH2012US021067

PATIENT
  Sex: Female

DRUGS (2)
  1. EXFORGE HCT [Suspect]
     Dosage: UNK
  2. EXFORGE [Suspect]
     Dosage: UNK

REACTIONS (7)
  - Eye haemorrhage [Unknown]
  - Gout [Unknown]
  - Muscle spasms [Recovered/Resolved]
  - Pain [Unknown]
  - Blood pressure inadequately controlled [Unknown]
  - Blood pressure increased [Unknown]
  - Tinnitus [Unknown]
